FAERS Safety Report 20774286 (Version 1)
Quarter: 2022Q2

REPORT INFORMATION
  Report Type: Spontaneous
  Country: US (occurrence: None)
  Receive Date: 20220429
  Receipt Date: 20220429
  Transmission Date: 20220721
  Serious: Yes (Other)
  Sender: FDA-Public Use
  Company Number: None

PATIENT
  Age: 71 Year
  Sex: Male
  Weight: 78.75 kg

DRUGS (1)
  1. PROPRANOLOL [Suspect]
     Active Substance: PROPRANOLOL HYDROCHLORIDE
     Indication: Essential tremor
     Dosage: FREQUENCY : DAILY;?
     Route: 048
     Dates: start: 20220405, end: 20220409

REACTIONS (3)
  - Palpitations [None]
  - Dizziness [None]
  - Suspected product contamination [None]

NARRATIVE: CASE EVENT DATE: 20220405
